FAERS Safety Report 7584512-8 (Version None)
Quarter: 2011Q2

REPORT INFORMATION
  Report Type: 
  Country: None (occurrence: None)
  Receive Date: 20110630
  Receipt Date: 20110627
  Transmission Date: 20111010
  Serious: Yes (Other)
  Sender: FDA-Public Use
  Company Number: US-ABBOTT-11P-163-0834865-00

PATIENT
  Sex: Female
  Weight: 53.572 kg

DRUGS (3)
  1. HUMIRA [Suspect]
     Indication: COLITIS ULCERATIVE
     Dosage: (160MG)
     Dates: start: 20110610, end: 20110610
  2. TILIA FE [Concomitant]
     Indication: CONTRACEPTION
  3. HUMIRA [Suspect]
     Dates: start: 20110624, end: 20110624

REACTIONS (4)
  - WHITE BLOOD CELL COUNT INCREASED [None]
  - CHEST PAIN [None]
  - COSTOCHONDRITIS [None]
  - COUGH [None]
